FAERS Safety Report 20017276 (Version 1)
Quarter: 2021Q4

REPORT INFORMATION
  Report Type: Spontaneous
  Country: DE (occurrence: DE)
  Receive Date: 20211030
  Receipt Date: 20211030
  Transmission Date: 20220303
  Serious: Yes (Hospitalization)
  Sender: FDA-Public Use
  Company Number: None

PATIENT
  Age: 6 Year
  Sex: Male

DRUGS (16)
  1. HYDROMORPHONE [Suspect]
     Active Substance: HYDROMORPHONE
     Indication: Product used for unknown indication
  2. SPIRONOLACTONE [Suspect]
     Active Substance: SPIRONOLACTONE
     Indication: Product used for unknown indication
  3. OMEPRAZOLE [Suspect]
     Active Substance: OMEPRAZOLE
     Indication: Product used for unknown indication
  4. LEVETIRACETAM [Suspect]
     Active Substance: LEVETIRACETAM
     Indication: Product used for unknown indication
  5. AMLODIPINE [Suspect]
     Active Substance: AMLODIPINE BESYLATE
     Indication: Product used for unknown indication
  6. TACROLIMUS [Suspect]
     Active Substance: TACROLIMUS
     Indication: Immunosuppression
  7. TACROLIMUS [Suspect]
     Active Substance: TACROLIMUS
     Indication: Posterior reversible encephalopathy syndrome
  8. PREDNISOLONE [Suspect]
     Active Substance: PREDNISOLONE
     Indication: Immunosuppression
     Dosage: INCREASED TO 2 MG/KG BODY WEIGHT
  9. PREDNISOLONE [Suspect]
     Active Substance: PREDNISOLONE
  10. DIHYDRALAZINE [Suspect]
     Active Substance: DIHYDRALAZINE
     Indication: Product used for unknown indication
  11. CYCLOSPORINE [Suspect]
     Active Substance: CYCLOSPORINE
     Indication: Product used for unknown indication
  12. CYCLOSPORINE [Suspect]
     Active Substance: CYCLOSPORINE
     Indication: Posterior reversible encephalopathy syndrome
  13. URSODIOL [Suspect]
     Active Substance: URSODIOL
     Indication: Product used for unknown indication
  14. FOSCARNET [Suspect]
     Active Substance: FOSCARNET
     Indication: Infection prophylaxis
  15. PIPERACILLIN SODIUM\TAZOBACTAM SODIUM [Suspect]
     Active Substance: PIPERACILLIN SODIUM\TAZOBACTAM SODIUM
     Indication: Infection prophylaxis
  16. AMPHOTERICIN B [Suspect]
     Active Substance: AMPHOTERICIN B
     Indication: Infection prophylaxis

REACTIONS (5)
  - Acute graft versus host disease in skin [Recovering/Resolving]
  - Toxic epidermal necrolysis [Recovering/Resolving]
  - Product use issue [Unknown]
  - Off label use [Unknown]
  - Off label use [Unknown]
